FAERS Safety Report 14488437 (Version 1)
Quarter: 2018Q1

REPORT INFORMATION
  Report Type: Spontaneous
  Country: US (occurrence: US)
  Receive Date: 20180205
  Receipt Date: 20180205
  Transmission Date: 20180509
  Serious: No
  Sender: FDA-Public Use
  Company Number: US-TAIHO ONCOLOGY INC-EU-2018-00120

PATIENT
  Age: 54 Year
  Sex: Male

DRUGS (2)
  1. LONSURF [Suspect]
     Active Substance: TIPIRACIL HYDROCHLORIDE\TRIFLURIDINE
     Indication: RECTAL CANCER
     Route: 048
     Dates: start: 20171108
  2. CELEXA [Concomitant]
     Active Substance: CITALOPRAM HYDROBROMIDE
     Dosage: NI

REACTIONS (5)
  - Weight decreased [Unknown]
  - Nausea [Unknown]
  - Abdominal pain upper [Unknown]
  - Decreased appetite [Unknown]
  - Fatigue [Unknown]

NARRATIVE: CASE EVENT DATE: 201711
